FAERS Safety Report 14133881 (Version 3)
Quarter: 2017Q4

REPORT INFORMATION
  Report Type: Spontaneous
  Country: US (occurrence: US)
  Receive Date: 20171027
  Receipt Date: 20171227
  Transmission Date: 20180321
  Serious: Yes (Other)
  Sender: FDA-Public Use
  Company Number: US-PFIZER INC-2017461361

PATIENT
  Age: 49 Year
  Sex: Female
  Weight: 49.9 kg

DRUGS (2)
  1. XELJANZ XR [Suspect]
     Active Substance: TOFACITINIB CITRATE
     Indication: RHEUMATOID ARTHRITIS
     Dosage: 11 MG, DAILY
     Route: 048
     Dates: start: 20170822
  2. ARMOUR THYROID [Concomitant]
     Active Substance: THYROID, PORCINE
     Indication: HYPOTHYROIDISM
     Dosage: UNK, SINGLE (67, ONCE)
     Route: 048

REACTIONS (5)
  - Pain in jaw [Unknown]
  - Liver disorder [Unknown]
  - Subcutaneous abscess [Unknown]
  - Acne cystic [Recovering/Resolving]
  - Disease recurrence [Unknown]
